FAERS Safety Report 25795047 (Version 1)
Quarter: 2025Q3

REPORT INFORMATION
  Report Type: Report from Study
  Country: EG (occurrence: EG)
  Receive Date: 20250912
  Receipt Date: 20250912
  Transmission Date: 20251020
  Serious: Yes (Congenital Anomaly)
  Sender: BIOGEN
  Company Number: EG-BIOGEN-2025BI01323500

PATIENT
  Age: 0 Year
  Sex: Female

DRUGS (1)
  1. TYSABRI [Suspect]
     Active Substance: NATALIZUMAB
     Indication: Maternal exposure timing unspecified
     Dosage: THERAPY START DATE: APR OR MAY 2024
     Route: 050
     Dates: start: 2024, end: 202407

REACTIONS (4)
  - Tethered oral tissue [Recovered/Resolved]
  - Jaundice neonatal [Unknown]
  - Foetal exposure during pregnancy [Recovered/Resolved]
  - Hypophagia [Unknown]

NARRATIVE: CASE EVENT DATE: 20250201
